FAERS Safety Report 19786708 (Version 2)
Quarter: 2021Q4

REPORT INFORMATION
  Report Type: Spontaneous
  Country: US (occurrence: US)
  Receive Date: 20210903
  Receipt Date: 20211001
  Transmission Date: 20220304
  Serious: Yes (Hospitalization, Other)
  Sender: FDA-Public Use
  Company Number: US-NEUROCRINE BIOSCIENCES INC.-2021NBI04800

PATIENT

DRUGS (3)
  1. INGREZZA [Suspect]
     Active Substance: VALBENAZINE
     Indication: Tardive dyskinesia
     Dosage: 80 MILLIGRAM, QD
     Route: 065
     Dates: start: 202107
  2. INGREZZA [Suspect]
     Active Substance: VALBENAZINE
     Dosage: 40 MILLIGRAM, QD
     Route: 065
     Dates: start: 20210716
  3. ZYPREXA [Concomitant]
     Active Substance: OLANZAPINE
     Dosage: 2.5 MILLIGRAM

REACTIONS (3)
  - Hospitalisation [Unknown]
  - Gait disturbance [Unknown]
  - Drooling [Unknown]

NARRATIVE: CASE EVENT DATE: 20210101
